FAERS Safety Report 8440900-9 (Version None)
Quarter: 2012Q2

REPORT INFORMATION
  Report Type: 
  Country: None (occurrence: None)
  Receive Date: 20120323
  Receipt Date: 20110922
  Transmission Date: 20120825
  Serious: Yes (Other)
  Sender: FDA-Public Use
  Company Number: 163-21880-11063547

PATIENT
  Age: 55 Year
  Sex: Female
  Weight: 95.2554 kg

DRUGS (18)
  1. NORCO (VICODIN) (TABLETS) [Concomitant]
  2. PROCRIT [Concomitant]
  3. FEMHRT (ANOVLAR) (TABLETS) [Concomitant]
  4. SERTRALINE HCL (SERTRALINE HYDROCHLORIDE) (100 MILLIGRAM, TABLETS) [Concomitant]
  5. GABAPENTIN (GABAPENTIN) (30 MILLIGRAM, CAPSULES) [Concomitant]
  6. FUROSEMIDE (FUROSEMIDE) (40 MILLIGRAM, TABLETS) [Concomitant]
  7. ZOLPIDEM TARTRATE (ZOLPIDEM TARTRATE) 95 MILLIGRAM, TABLETS) [Concomitant]
  8. LEVOTHYROXINE SODIUM (LEVOTHYROXINE SODIUM) (125 MICROGRAM, TABLETS) [Concomitant]
  9. SEROQUEL (QUETIAPINE FUMARATE) (100 MILLIGRAM, TABLETS) [Concomitant]
  10. ALTACE (RAMIPRIL) (10 MILLIGRAM, TABLETS) [Concomitant]
  11. DIPHENOXYLATE-ATROPINE (LOMOTIL) (TABLETS) [Concomitant]
  12. REVLIMID [Suspect]
     Indication: MULTIPLE MYELOMA
     Dosage: 15 MG, 1 IN 1 D, PO   10 MG, 1 IN 1 D, PO   5 MG, DAILY X 21 DAYS, PO
     Route: 048
     Dates: start: 20110513, end: 20110601
  13. REVLIMID [Suspect]
     Indication: MULTIPLE MYELOMA
     Dosage: 15 MG, 1 IN 1 D, PO   10 MG, 1 IN 1 D, PO   5 MG, DAILY X 21 DAYS, PO
     Route: 048
     Dates: start: 20110128, end: 20110214
  14. REVLIMID [Suspect]
     Indication: MULTIPLE MYELOMA
     Dosage: 15 MG, 1 IN 1 D, PO   10 MG, 1 IN 1 D, PO   5 MG, DAILY X 21 DAYS, PO
     Route: 048
     Dates: start: 20110103, end: 20110117
  15. LOVENOX (HEPARIN-FRACTION, SODIUM SALT) (UNKNOWN) [Concomitant]
  16. FAMOTIDINE (FAMOTIDINE) (40 MILLIGRAM, TABLETS) [Concomitant]
  17. DECADRON [Concomitant]
  18. OXYCONTIN (OXYCODONE HYDROCHLORIDE) (40 MILLIGRAM, TABLETS) [Concomitant]

REACTIONS (3)
  - ANAEMIA [None]
  - CELLULITIS [None]
  - CYST [None]
